FAERS Safety Report 24464120 (Version 1)
Quarter: 2024Q4

REPORT INFORMATION
  Report Type: Report from Study
  Country: US (occurrence: US)
  Receive Date: 20241018
  Receipt Date: 20241018
  Transmission Date: 20250114
  Serious: No
  Sender: ROCHE
  Company Number: US-ROCHE-3435404

PATIENT
  Age: 21 Year
  Sex: Female

DRUGS (18)
  1. XOLAIR [Suspect]
     Active Substance: OMALIZUMAB
     Indication: Idiopathic urticaria
     Route: 058
  2. XOLAIR [Suspect]
     Active Substance: OMALIZUMAB
  3. SENOKOT [Concomitant]
     Active Substance: SENNOSIDES
  4. BENADRYL [Concomitant]
     Active Substance: DIPHENHYDRAMINE HYDROCHLORIDE
  5. HYDROXYZINE HYDROCHLORIDE [Concomitant]
     Active Substance: HYDROXYZINE HYDROCHLORIDE
  6. TYLENOL EXTRA STRENGTH [Concomitant]
     Active Substance: ACETAMINOPHEN
  7. IBUPROFEN [Concomitant]
     Active Substance: IBUPROFEN
  8. ONDANSETRON [Concomitant]
     Active Substance: ONDANSETRON
  9. RIZATRIPTAN [Concomitant]
     Active Substance: RIZATRIPTAN
  10. EPIPEN [Concomitant]
     Active Substance: EPINEPHRINE
  11. RIBOFLAVIN [Concomitant]
     Active Substance: RIBOFLAVIN
  12. COENZYME Q10 [Concomitant]
     Active Substance: DIETARY SUPPLEMENT\UBIDECARENONE
  13. CLINDAMYCIN [Concomitant]
     Active Substance: CLINDAMYCIN
  14. TRETINOIN [Concomitant]
     Active Substance: TRETINOIN
  15. AKLIEF [Concomitant]
     Active Substance: TRIFAROTENE
  16. MINOCYCLINE [Concomitant]
     Active Substance: MINOCYCLINE HYDROCHLORIDE
  17. LUBIPROSTONE [Concomitant]
     Active Substance: LUBIPROSTONE
  18. FEXOFENADINE [Concomitant]
     Active Substance: FEXOFENADINE HYDROCHLORIDE

REACTIONS (6)
  - Lacrimation increased [Unknown]
  - Sneezing [Unknown]
  - Nasal congestion [Unknown]
  - Nasal pruritus [Unknown]
  - Periorbital swelling [Unknown]
  - Oropharyngeal pain [Unknown]
